FAERS Safety Report 7521700-0 (Version None)
Quarter: 2011Q2

REPORT INFORMATION
  Report Type: 
  Country: None (occurrence: None)
  Receive Date: 20110603
  Receipt Date: 20101221
  Transmission Date: 20111010
  Serious: Yes (Hospitalization, Other)
  Sender: FDA-Public Use
  Company Number: US-BAYER-201035910NA

PATIENT
  Age: 34 Year
  Sex: Female
  Weight: 121.54 kg

DRUGS (11)
  1. ZIAC [Concomitant]
     Dosage: UNK
     Dates: start: 20000101
  2. NSAID'S [Concomitant]
  3. YASMIN [Suspect]
     Indication: MENOMETRORRHAGIA
  4. YASMIN [Suspect]
     Indication: CONTRACEPTION
     Dosage: SAMPLES RECEIVED 2 TO 3 PACK EACH TIME
     Route: 048
     Dates: start: 20020514, end: 20060603
  5. YASMIN [Suspect]
     Indication: PREMENSTRUAL SYNDROME
     Dosage: UNK
     Dates: start: 20020319, end: 20050506
  6. ANTICOAGULANT CIT PHOS DEX ADENINE [Concomitant]
     Dosage: UNK
     Dates: start: 20030101
  7. ANTICOAGULANT CIT PHOS DEX ADENINE [Concomitant]
     Dosage: UNK
     Dates: start: 20090101
  8. ANTICOAGULANT CIT PHOS DEX ADENINE [Concomitant]
     Dosage: UNK
     Dates: start: 20050101
  9. ATENOLOL [Concomitant]
     Dosage: UNK
     Dates: start: 19970101, end: 20000101
  10. ADVIL LIQUI-GELS [Concomitant]
     Dosage: UNK
  11. HYDROCHLOROTHIAZIDE [Concomitant]
     Dosage: UNK
     Dates: start: 19970101, end: 20000101

REACTIONS (3)
  - CHOLECYSTITIS CHRONIC [None]
  - CHOLELITHIASIS [None]
  - GALLBLADDER DISORDER [None]
